FAERS Safety Report 4592644-1 (Version None)
Quarter: 2005Q1

REPORT INFORMATION
  Report Type: 
  Country: None (occurrence: None)
  Receive Date: 20050228
  Receipt Date: 20050223
  Transmission Date: 20050727
  Serious: Yes (Hospitalization, Other)
  Sender: FDA-Public Use
  Company Number: NSADSS2002027919

PATIENT
  Sex: Female
  Weight: 54.43 kg

DRUGS (10)
  1. LEVOFLOXACIN [Suspect]
     Route: 049
     Dates: start: 20010401
  2. LEVOFLOXACIN [Suspect]
     Route: 049
     Dates: start: 20010401
  3. LEVOFLOXACIN [Suspect]
     Indication: CHRONIC SINUSITIS
     Route: 049
     Dates: start: 20010401
  4. AMITRIPTYLINE HCL [Concomitant]
  5. RHINOCORT [Concomitant]
     Route: 055
  6. TOPAMAX [Concomitant]
     Indication: MIGRAINE
  7. IMITREX [Concomitant]
     Dosage: PRN
  8. SYNTHROID [Concomitant]
  9. AUGMENTIN '125' [Concomitant]
     Route: 049
  10. AUGMENTIN '125' [Concomitant]
     Route: 049

REACTIONS (4)
  - ARTHRALGIA [None]
  - CHONDROMALACIA [None]
  - LIGAMENT INJURY [None]
  - MUSCLE DISORDER [None]
